FAERS Safety Report 9279233 (Version 1)
Quarter: 2013Q2

REPORT INFORMATION
  Report Type: Spontaneous
  Country: US (occurrence: US)
  Receive Date: 20130508
  Receipt Date: 20130508
  Transmission Date: 20140414
  Serious: Yes (Other)
  Sender: FDA-Public Use
  Company Number: CHPA2013US007688

PATIENT
  Age: 71 Year
  Sex: Female

DRUGS (3)
  1. MYOFLEX ANALGESIC CREME [Suspect]
     Indication: TENDON RUPTURE
     Dosage: 1 IN ON BACK OR 1/4 IN ON EACH KNEE, PRN
     Route: 061
     Dates: start: 1982
  2. MYOFLEX ANALGESIC CREME [Suspect]
     Indication: ARTHRITIS
  3. MYOFLEX ANALGESIC CREME [Suspect]
     Indication: BACK PAIN

REACTIONS (3)
  - Tendon rupture [Recovered/Resolved]
  - Off label use [Unknown]
  - Expired drug administered [Unknown]
